FAERS Safety Report 5447712-9 (Version None)
Quarter: 2007Q3

REPORT INFORMATION
  Report Type: 
  Country: None (occurrence: None)
  Receive Date: 20070910
  Receipt Date: 20070830
  Transmission Date: 20080115
  Serious: Yes (Other)
  Sender: FDA-Public Use
  Company Number: US-ROCHE-508207

PATIENT
  Age: 51 Year
  Sex: Female
  Weight: 88 kg

DRUGS (1)
  1. PEGASYS [Suspect]
     Indication: HEPATITIS C
     Dosage: REPORTED AS MAINTENANCE THERAPY
     Route: 058
     Dates: start: 20040201

REACTIONS (3)
  - ANAL CANCER [None]
  - HYPOAESTHESIA [None]
  - OEDEMA PERIPHERAL [None]
